FAERS Safety Report 9420776 (Version 1)
Quarter: 2013Q3

REPORT INFORMATION
  Report Type: Spontaneous
  Country: US (occurrence: US)
  Receive Date: 20130725
  Receipt Date: 20130725
  Transmission Date: 20140515
  Serious: No
  Sender: FDA-Public Use
  Company Number: US-ABBOTT-13P-163-1078026-00

PATIENT
  Sex: Female
  Weight: 65.83 kg

DRUGS (1)
  1. SYNTHROID [Suspect]
     Indication: HYPOTHYROIDISM

REACTIONS (3)
  - Hair disorder [Unknown]
  - Drug ineffective [Unknown]
  - Nail disorder [Unknown]
